FAERS Safety Report 5152355-0 (Version None)
Quarter: 2006Q4

REPORT INFORMATION
  Report Type: 
  Country: None (occurrence: None)
  Receive Date: 20061116
  Receipt Date: 20061109
  Transmission Date: 20070319
  Serious: Yes (Other)
  Sender: FDA-Public Use
  Company Number: 2006UW23432

PATIENT
  Age: 85 Year
  Sex: Female
  Weight: 68 kg

DRUGS (3)
  1. ARIMIDEX [Suspect]
     Indication: BREAST CANCER
     Route: 048
     Dates: start: 20060801
  2. NORVASC [Concomitant]
     Indication: CARDIAC DISORDER
  3. PRILOSEC [Concomitant]

REACTIONS (1)
  - STAPHYLOCOCCAL INFECTION [None]
